FAERS Safety Report 11365969 (Version 1)
Quarter: 2015Q3

REPORT INFORMATION
  Report Type: Report from Study
  Country: CA (occurrence: CA)
  Receive Date: 20150811
  Receipt Date: 20150811
  Transmission Date: 20151125
  Serious: Yes (Hospitalization, Other)
  Sender: FDA-Public Use
  Company Number: CA-BAYER-2015-393129

PATIENT
  Age: 81 Year
  Sex: Female
  Weight: 53.61 kg

DRUGS (12)
  1. ATORVASTATIN [Concomitant]
     Active Substance: ATORVASTATIN
  2. AMLODIPIN SANDOZ [Concomitant]
  3. WARFARIN [Concomitant]
     Active Substance: WARFARIN
  4. SPIRONOLACTONE. [Concomitant]
     Active Substance: SPIRONOLACTONE
  5. TELMISARTAN. [Concomitant]
     Active Substance: TELMISARTAN
  6. HYDROCORTISONE. [Concomitant]
     Active Substance: HYDROCORTISONE
     Indication: PRURITUS
  7. RATIO-METFORMIN [Concomitant]
  8. APO ATENOLOL [Concomitant]
  9. PANTOPRAZOLE [Concomitant]
     Active Substance: PANTOPRAZOLE SODIUM
     Dosage: 40 MG, UNK
  10. ENALAPRIL [Concomitant]
     Active Substance: ENALAPRIL
  11. ADEMPAS [Suspect]
     Active Substance: RIOCIGUAT
     Indication: PULMONARY HYPERTENSION
     Dosage: 1 MG, TID
     Route: 048
     Dates: start: 20150722
  12. DIGOXIN. [Concomitant]
     Active Substance: DIGOXIN

REACTIONS (9)
  - Fatigue [Not Recovered/Not Resolved]
  - Diarrhoea [Not Recovered/Not Resolved]
  - Hospitalisation [Not Recovered/Not Resolved]
  - Lethargy [Not Recovered/Not Resolved]
  - Blood pressure fluctuation [Not Recovered/Not Resolved]
  - Abdominal discomfort [Not Recovered/Not Resolved]
  - Feeling hot [Not Recovered/Not Resolved]
  - Headache [Not Recovered/Not Resolved]
  - Neck pain [Not Recovered/Not Resolved]

NARRATIVE: CASE EVENT DATE: 20150722
